FAERS Safety Report 21814958 (Version 1)
Quarter: 2023Q1

REPORT INFORMATION
  Report Type: Spontaneous
  Country: ES (occurrence: ES)
  Receive Date: 20230104
  Receipt Date: 20230104
  Transmission Date: 20230418
  Serious: Yes (Other)
  Sender: FDA-Public Use
  Company Number: ES-STERISCIENCE B.V.-2022-ST-000509

PATIENT
  Age: 83 Year
  Sex: Female

DRUGS (5)
  1. BUPIVACAINE [Suspect]
     Active Substance: BUPIVACAINE
     Indication: Anaesthesia
     Dosage: 6ML PERIBULBAR BLOCK WITH HYALURONIDASE 150IU, BUPIVACAINE 0.75% AND MEPIVACAINE 2%.
  2. HYALURONIDASE [Suspect]
     Active Substance: HYALURONIDASE
     Indication: Anaesthesia
     Dosage: 6ML PERIBULBAR BLOCK WITH HYALURONIDASE 150IU, BUPIVACAINE 0.75% AND MEPIVACAINE 2%.
  3. MEPIVACAINE [Suspect]
     Active Substance: MEPIVACAINE HYDROCHLORIDE
     Indication: Anaesthesia
     Dosage: 6ML PERIBULBAR BLOCK WITH HYALURONIDASE 150IU, BUPIVACAINE 0.75% AND MEPIVACAINE 2%.
  4. BISOPROLOL [Concomitant]
     Active Substance: BISOPROLOL
     Indication: Product used for unknown indication
     Dosage: UNK
  5. ASPIRIN [Concomitant]
     Active Substance: ASPIRIN
     Indication: Product used for unknown indication
     Dosage: UNK

REACTIONS (1)
  - Acute macular neuroretinopathy [None]
